FAERS Safety Report 16803474 (Version 1)
Quarter: 2019Q3

REPORT INFORMATION
  Report Type: Report from Study
  Country: None (occurrence: CO)
  Receive Date: 20190913
  Receipt Date: 20190913
  Transmission Date: 20191005
  Serious: Yes (Death)
  Sender: FDA-Public Use
  Company Number: CO-ABBVIE-19K-036-2922000-00

PATIENT
  Age: 70 Year
  Sex: Female

DRUGS (1)
  1. ZEMPLAR [Suspect]
     Active Substance: PARICALCITOL
     Indication: HYPERPARATHYROIDISM SECONDARY
     Dosage: AMPOULE
     Route: 042
     Dates: start: 20190227, end: 20190730

REACTIONS (3)
  - Dyspnoea [Fatal]
  - Diabetic foot [Fatal]
  - Cardiac failure [Fatal]

NARRATIVE: CASE EVENT DATE: 201906
